FAERS Safety Report 8182043-8 (Version None)
Quarter: 2012Q1

REPORT INFORMATION
  Report Type: 
  Country: None (occurrence: None)
  Receive Date: 20120302
  Receipt Date: 20120222
  Transmission Date: 20120608
  Serious: Yes (Other)
  Sender: FDA-Public Use
  Company Number: PHEH2012US002757

PATIENT
  Sex: Male

DRUGS (5)
  1. DIOVAN [Concomitant]
     Dosage: 300 MG, DAILY
  2. METOPROLOL SUCCINATE [Concomitant]
     Indication: HYPERTENSION
     Dosage: 50 MG, DAILY
  3. LASIX [Concomitant]
     Dosage: 20 MG, DAILY
     Route: 048
  4. SIMVASTATIN [Concomitant]
     Indication: HYPERTENSION
     Dosage: 10 MG, DAILY
  5. TASIGNA [Suspect]
     Indication: ACUTE MYELOID LEUKAEMIA
     Dosage: 200 MG, BID
     Route: 048
     Dates: start: 20111227

REACTIONS (5)
  - OEDEMA [None]
  - FATIGUE [None]
  - PLEURAL EFFUSION [None]
  - WEIGHT INCREASED [None]
  - DYSPNOEA [None]
